FAERS Safety Report 8954640 (Version 2)
Quarter: 2013Q1

REPORT INFORMATION
  Report Type: Spontaneous
  Country: US (occurrence: US)
  Receive Date: 20121207
  Receipt Date: 20130301
  Transmission Date: 20140127
  Serious: No
  Sender: FDA-Public Use
  Company Number: US-ASTRAZENECA-2012SE88659

PATIENT
  Age: 85 Year
  Sex: Female
  Weight: 45.4 kg

DRUGS (10)
  1. ENTOCORT EC [Suspect]
     Indication: COLITIS
     Route: 048
     Dates: start: 20121011
  2. ENTOCORT EC [Suspect]
     Indication: INFLAMMATORY BOWEL DISEASE
     Route: 048
     Dates: start: 20121011
  3. GLAMIPERIDE [Concomitant]
     Indication: DIABETES MELLITUS
  4. AMLODIPINE [Concomitant]
  5. VENAZEPRIL [Concomitant]
     Indication: BLOOD PRESSURE
  6. TRIAMPTERINE HCTZ [Concomitant]
  7. ALPHAGAN P [Concomitant]
  8. DORAZOLANDE [Concomitant]
  9. TIMOLOL [Concomitant]
  10. OPC FACTOR [Concomitant]
     Indication: ANTIOXIDANT THERAPY

REACTIONS (5)
  - Fatigue [Not Recovered/Not Resolved]
  - Dyspnoea exertional [Not Recovered/Not Resolved]
  - Gait disturbance [Unknown]
  - Asthenia [Not Recovered/Not Resolved]
  - Off label use [Unknown]
